FAERS Safety Report 6721137-8 (Version None)
Quarter: 2010Q2

REPORT INFORMATION
  Report Type: 
  Country: None (occurrence: None)
  Receive Date: 20100512
  Receipt Date: 20100326
  Transmission Date: 20101027
  Serious: Yes (Death, Hospitalization)
  Sender: FDA-Public Use
  Company Number: JP-BAYER-200910049BYL

PATIENT
  Age: 54 Year
  Sex: Male
  Weight: 73 kg

DRUGS (28)
  1. NEXAVAR [Suspect]
     Indication: RENAL CELL CARCINOMA
     Dosage: TOTAL DAILY DOSE: 800 MG  UNIT DOSE: 200 MG
     Route: 048
     Dates: start: 20080424, end: 20080813
  2. NEXAVAR [Suspect]
     Dosage: TOTAL DAILY DOSE: 400 MG  UNIT DOSE: 200 MG
     Route: 048
     Dates: start: 20080814, end: 20080827
  3. NEXAVAR [Suspect]
     Dosage: TOTAL DAILY DOSE: 800 MG  UNIT DOSE: 200 MG
     Route: 048
     Dates: start: 20080828, end: 20080910
  4. NEXAVAR [Suspect]
     Dosage: UNIT DOSE: 200 MG
     Route: 048
     Dates: start: 20080911, end: 20081220
  5. OXYCONTIN [Concomitant]
     Route: 048
     Dates: start: 20080424, end: 20080911
  6. MAGLAX [Concomitant]
     Route: 048
     Dates: start: 20080424, end: 20080911
  7. PREDONINE [Concomitant]
     Route: 048
     Dates: start: 20080424, end: 20081101
  8. PREDONINE [Concomitant]
     Route: 065
     Dates: start: 20081230, end: 20081231
  9. BUP-4 [Concomitant]
     Route: 048
     Dates: start: 20080424, end: 20081101
  10. NEORAL [Concomitant]
     Route: 048
     Dates: start: 20080424, end: 20081101
  11. MICARDIS [Concomitant]
     Route: 048
     Dates: start: 20080424, end: 20081210
  12. TAGAMET [Concomitant]
     Route: 041
     Dates: start: 20081230, end: 20090113
  13. TAGAMET [Concomitant]
     Route: 048
     Dates: start: 20080424, end: 20081201
  14. HOCHU-EKKI-TO [Concomitant]
     Route: 048
     Dates: start: 20080424, end: 20080512
  15. CELLCEPT [Concomitant]
     Route: 048
     Dates: start: 20080424, end: 20080516
  16. URSO 250 [Concomitant]
     Route: 048
     Dates: start: 20080424, end: 20080511
  17. GLYCYRON [Concomitant]
     Route: 048
     Dates: start: 20080424, end: 20080518
  18. HERBESSER R [Concomitant]
     Indication: HYPERTENSION
     Route: 048
     Dates: start: 20080424, end: 20080621
  19. ADALAT [Concomitant]
     Indication: HYPERTENSION
     Route: 048
     Dates: start: 20080424, end: 20080911
  20. FUNGUARD [Concomitant]
     Route: 041
     Dates: start: 20090109, end: 20090113
  21. ANTHROBIN P [Concomitant]
     Route: 041
     Dates: start: 20081230, end: 20090101
  22. ANTHROBIN P [Concomitant]
     Route: 041
     Dates: start: 20090107, end: 20090109
  23. MEROPEN [Concomitant]
     Route: 041
     Dates: start: 20081230, end: 20090106
  24. NEO-MINOPHAGEN C [Concomitant]
     Route: 065
     Dates: start: 20081230, end: 20090105
  25. CLIDAMACIN [Concomitant]
     Route: 065
     Dates: start: 20090106, end: 20090108
  26. VANCOMYCIN [Concomitant]
     Route: 041
     Dates: start: 20090108, end: 20090108
  27. VENOGLOBULIN-I [Concomitant]
     Route: 065
     Dates: start: 20090108, end: 20090110
  28. TAZOCIN [Concomitant]
     Route: 065
     Dates: start: 20090108, end: 20090113

REACTIONS (7)
  - ALOPECIA [None]
  - AMMONIA INCREASED [None]
  - DIARRHOEA [None]
  - HEPATIC FUNCTION ABNORMAL [None]
  - IMMUNOSUPPRESSANT DRUG LEVEL INCREASED [None]
  - INTESTINAL PERFORATION [None]
  - PALMAR-PLANTAR ERYTHRODYSAESTHESIA SYNDROME [None]
